FAERS Safety Report 5261035-2 (Version None)
Quarter: 2007Q1

REPORT INFORMATION
  Report Type: 
  Country: None (occurrence: None)
  Receive Date: 20070309
  Receipt Date: 20070228
  Transmission Date: 20070707
  Serious: Yes (Other)
  Sender: FDA-Public Use
  Company Number: 2006UW23574

PATIENT
  Age: 64 Year
  Sex: Female
  Weight: 83.6 kg

DRUGS (1)
  1. SEROQUEL [Suspect]
     Indication: MENTAL DISORDER
     Route: 048

REACTIONS (6)
  - BACK PAIN [None]
  - BLOOD PRESSURE [None]
  - BLOOD PRESSURE ABNORMAL [None]
  - DIABETES MELLITUS [None]
  - DIABETIC COMPLICATION [None]
  - RENAL DISORDER [None]
